FAERS Safety Report 7843289-9 (Version None)
Quarter: 2011Q4

REPORT INFORMATION
  Report Type: 
  Country: None (occurrence: None)
  Receive Date: 20111020
  Receipt Date: 20111006
  Transmission Date: 20120403
  Serious: Yes (Other)
  Sender: FDA-Public Use
  Company Number: 2011SP047858

PATIENT

DRUGS (4)
  1. REBETOL [Suspect]
     Indication: HEPATITIS C
     Dosage: QD;PO
     Route: 048
  2. REBETOL [Suspect]
     Indication: HEPATIC NEOPLASM MALIGNANT
     Dosage: QD;PO
     Route: 048
  3. PEG-INTRON [Suspect]
     Indication: HEPATITIS C
     Dosage: 1.5 MCG/KG;QW;SC
     Route: 058
  4. PEG-INTRON [Suspect]
     Indication: HEPATIC NEOPLASM MALIGNANT
     Dosage: 1.5 MCG/KG;QW;SC
     Route: 058

REACTIONS (1)
  - OESOPHAGEAL VARICES HAEMORRHAGE [None]
